FAERS Safety Report 16381868 (Version 1)
Quarter: 2019Q2

REPORT INFORMATION
  Report Type: Spontaneous
  Country: FR (occurrence: FR)
  Receive Date: 20190603
  Receipt Date: 20190603
  Transmission Date: 20190711
  Serious: Yes (Hospitalization, Other)
  Sender: FDA-Public Use
  Company Number: FR-BIOVITRUM-2019FR1300

PATIENT
  Age: 33 Year
  Sex: Female
  Weight: 45 kg

DRUGS (5)
  1. KINERET [Suspect]
     Active Substance: ANAKINRA
  2. KINERET [Suspect]
     Active Substance: ANAKINRA
     Indication: FAMILIAL MEDITERRANEAN FEVER
     Route: 058
     Dates: start: 20110706, end: 201806
  3. PARACETAMOL [Concomitant]
     Active Substance: ACETAMINOPHEN
     Indication: HEADACHE
     Route: 048
     Dates: start: 2012, end: 2018
  4. CODEIN [Concomitant]
     Active Substance: CODEINE
     Indication: HEADACHE
     Route: 048
  5. COLCHINE [Concomitant]
     Active Substance: COLCHICINE
     Indication: FAMILIAL MEDITERRANEAN FEVER
     Dates: start: 1977

REACTIONS (2)
  - Cutaneous sarcoidosis [Recovered/Resolved]
  - Off label use [Recovered/Resolved]

NARRATIVE: CASE EVENT DATE: 20110706
